FAERS Safety Report 23295462 (Version 1)
Quarter: 2023Q4

REPORT INFORMATION
  Report Type: Spontaneous
  Country: US (occurrence: US)
  Receive Date: 20231214
  Receipt Date: 20231214
  Transmission Date: 20240110
  Serious: No
  Sender: FDA-Public Use
  Company Number: US-ALVOGEN-2023092200

PATIENT
  Age: 61 Year
  Sex: Female

DRUGS (3)
  1. FENTANYL [Suspect]
     Active Substance: FENTANYL\FENTANYL CITRATE
     Indication: Product used for unknown indication
     Dosage: STRENGTH: 25 MCG/HOUR PATCH
  2. OXYCODONE HYDROCHLORIDE [Suspect]
     Active Substance: OXYCODONE HYDROCHLORIDE
     Indication: Product used for unknown indication
     Dosage: STRENGTH: 50 MG
     Route: 048
  3. TYLENOL [Suspect]
     Active Substance: ACETAMINOPHEN
     Indication: Product used for unknown indication

REACTIONS (13)
  - Feeling hot [Unknown]
  - Chills [Unknown]
  - Rhinorrhoea [Unknown]
  - Memory impairment [Unknown]
  - Nightmare [Unknown]
  - Adverse event [Unknown]
  - Disturbance in attention [Unknown]
  - Feeling cold [Unknown]
  - Diarrhoea [Unknown]
  - Insomnia [Unknown]
  - Dyspnoea [Unknown]
  - Hyperhidrosis [Unknown]
  - Product availability issue [Unknown]
